FAERS Safety Report 13393016 (Version 1)
Quarter: 2017Q1

REPORT INFORMATION
  Report Type: Spontaneous
  Country: US (occurrence: US)
  Receive Date: 20170331
  Receipt Date: 20170331
  Transmission Date: 20170429
  Serious: Yes (Hospitalization, Other)
  Sender: FDA-Public Use
  Company Number: US-PFIZER INC-2017058556

PATIENT
  Age: 74 Year
  Sex: Female

DRUGS (8)
  1. IBRANCE [Suspect]
     Active Substance: PALBOCICLIB
     Indication: HEPATIC CANCER METASTATIC
  2. COMPAZINE [Concomitant]
     Active Substance: PROCHLORPERAZINE MALEATE
     Dosage: 10 MG, AS NEEDED [EVERY 6 (SIX) HOURS]
     Route: 048
     Dates: start: 20161017
  3. IBRANCE [Suspect]
     Active Substance: PALBOCICLIB
     Indication: BREAST CANCER METASTATIC
     Dosage: 125 MG, CYCLIC[DAILY FOR 21 DAYS THEN 7 DAYS OFF (28 DAYS CYCLE)]
     Route: 048
     Dates: start: 20170106, end: 20170117
  4. IBRANCE [Suspect]
     Active Substance: PALBOCICLIB
     Indication: BONE CANCER METASTATIC
     Dosage: 125 MG, DAILY [BREAKFAST]
     Route: 048
     Dates: start: 20170130, end: 20170201
  5. MONODOX [Concomitant]
     Active Substance: DOXYCYCLINE
     Indication: SKIN DISORDER
  6. TYLENOL [Concomitant]
     Active Substance: ACETAMINOPHEN
     Indication: PAIN
     Dosage: 650 MG, AS NEEDED [EVERY 6 (SIX) HOURS]
     Route: 048
  7. MONODOX [Concomitant]
     Active Substance: DOXYCYCLINE
     Indication: SKIN INFECTION
     Dosage: 100 MG, 2X/DAY
     Route: 048
     Dates: start: 20161111, end: 20170209
  8. DAILY-VITE [Concomitant]
     Dosage: 1 TABLET BY MOUTH DAILY
     Route: 048

REACTIONS (16)
  - Pyrexia [Unknown]
  - Neutropenic sepsis [Unknown]
  - Cellulitis [Recovering/Resolving]
  - Hypokalaemia [Unknown]
  - Sepsis [Recovered/Resolved]
  - Full blood count abnormal [Unknown]
  - Tachycardia [Unknown]
  - Leukopenia [Unknown]
  - White blood cell count decreased [Unknown]
  - Erythema [Recovering/Resolving]
  - Neutrophil count decreased [Unknown]
  - Asthenia [Unknown]
  - Hypomagnesaemia [Unknown]
  - Febrile neutropenia [Unknown]
  - Infection [Unknown]
  - Skin lesion [Unknown]

NARRATIVE: CASE EVENT DATE: 20170117
